FAERS Safety Report 18990634 (Version 2)
Quarter: 2021Q2

REPORT INFORMATION
  Report Type: Other
  Country: DE (occurrence: DE)
  Receive Date: 20210310
  Receipt Date: 20210408
  Transmission Date: 20210717
  Serious: Yes (Hospitalization, Other)
  Sender: FDA-Public Use
  Company Number: DE-MACLEODS PHARMA UK LTD-MAC2021030396

PATIENT

DRUGS (12)
  1. PANTOPRAZOLE [Concomitant]
     Active Substance: PANTOPRAZOLE
     Indication: PRODUCT USED FOR UNKNOWN INDICATION
     Dosage: 40 MILLIGRAM, AS NECESSARY REQUIREMENT
     Route: 065
  2. ROTIGOTINE [Concomitant]
     Active Substance: ROTIGOTINE
     Dosage: 1 DOSAGE FORM, QD 4 MG/D, (1?0?0?0) PFLASTER TRANSDERMAL
     Route: 062
  3. ROTIGOTINE [Concomitant]
     Active Substance: ROTIGOTINE
     Indication: PRODUCT USED FOR UNKNOWN INDICATION
     Dosage: 1 DOSAGE FORM, 8 MG/D, (1?0?0?0) QD, PFLASTER TRANSDERMAL
     Route: 062
  4. VALSARTAN. [Concomitant]
     Active Substance: VALSARTAN
     Indication: PRODUCT USED FOR UNKNOWN INDICATION
     Dosage: UNK, BID, 80 MG (0.5?0?2?0) QID, 200 MG QD
     Route: 065
  5. TAPENTADOL [Interacting]
     Active Substance: TAPENTADOL
     Indication: PRODUCT USED FOR UNKNOWN INDICATION
     Dosage: 50 MG (1?0?1?0) BID, MEDICATION ERROR
     Route: 065
  6. TROSPIUM [Concomitant]
     Active Substance: TROSPIUM
     Indication: PRODUCT USED FOR UNKNOWN INDICATION
     Dosage: 15 MILLIGRAM 12 HOUR, 30 MG, BID (0.5?0?0.5?0)
     Route: 065
  7. RIVASTIGMINE. [Suspect]
     Active Substance: RIVASTIGMINE
     Indication: PRODUCT USED FOR UNKNOWN INDICATION
     Dosage: 9.5 MILLIGRAM, QD (1?0?0?0)
     Route: 065
  8. CARBIDOPA/LEVODOPA [Concomitant]
     Active Substance: CARBIDOPA\LEVODOPA
     Indication: PRODUCT USED FOR UNKNOWN INDICATION
     Dosage: 1 DOSAGE FORM, 6 HOUR, (25|100 MG, 1?1?1?1)
     Route: 065
  9. METOPROLOL. [Concomitant]
     Active Substance: METOPROLOL
     Indication: PRODUCT USED FOR UNKNOWN INDICATION
     Dosage: 23.75 MILLIGRAM, QD (1?0?0?0)
     Route: 065
  10. DULOXETINE 30 MG CAPSULE [Suspect]
     Active Substance: DULOXETINE
     Indication: PRODUCT USED FOR UNKNOWN INDICATION
     Dosage: 30 MILLIGRAM, QD (1?0?0?0)
     Route: 065
  11. RASAGLINE 1MG TABLET [Interacting]
     Active Substance: RASAGILINE
     Indication: PRODUCT USED FOR UNKNOWN INDICATION
     Dosage: 1 MILLIGRAM, QD (1?0?0?0), MEDICATION ERROR
     Route: 065
  12. CINNARIZINE/DIMENHYDRINATE [Concomitant]
     Indication: PRODUCT USED FOR UNKNOWN INDICATION
     Dosage: 1 DOSAGE FORM, TID 8 HOUR, 20|40 MG
     Route: 065

REACTIONS (8)
  - Hypertensive crisis [Unknown]
  - Hypertension [Unknown]
  - Product prescribing error [Unknown]
  - Haematemesis [Unknown]
  - Asthenia [Unknown]
  - Pallor [Unknown]
  - Tremor [Unknown]
  - Labelled drug-drug interaction medication error [Unknown]
